FAERS Safety Report 13860459 (Version 1)
Quarter: 2017Q3

REPORT INFORMATION
  Report Type: Report from Study
  Country: US (occurrence: US)
  Receive Date: 20170811
  Receipt Date: 20170811
  Transmission Date: 20171127
  Serious: Yes (Death)
  Sender: FDA-Public Use
  Company Number: US-PFIZER INC-2017344341

PATIENT
  Sex: Female

DRUGS (2)
  1. CARBOPLATIN. [Suspect]
     Active Substance: CARBOPLATIN
     Indication: BREAST CANCER METASTATIC
     Dosage: (AREA UNDER THE CURVE, 2.5, ON DAYS 1 AND 8 OF A 21 DAY CYCLE)
     Route: 042
  2. IXABEPILONE [Suspect]
     Active Substance: IXABEPILONE
     Indication: BREAST CANCER METASTATIC
     Dosage: 20 MG/M2, CYCLIC (OVER 60 MINUTES)
     Route: 042

REACTIONS (1)
  - Neutropenic sepsis [Fatal]
